FAERS Safety Report 18333477 (Version 1)
Quarter: 2020Q4

REPORT INFORMATION
  Report Type: Report from Study
  Country: None (occurrence: US)
  Receive Date: 20201001
  Receipt Date: 20201001
  Transmission Date: 20210113
  Serious: Yes (Other)
  Sender: FDA-Public Use
  Company Number: US-ABBVIE-20K-163-3586470-00

PATIENT
  Sex: Female

DRUGS (1)
  1. HUMIRA [Suspect]
     Active Substance: ADALIMUMAB
     Indication: RHEUMATOID ARTHRITIS
     Route: 058

REACTIONS (7)
  - Musculoskeletal stiffness [Unknown]
  - Nasopharyngitis [Unknown]
  - Fatigue [Unknown]
  - Asthenia [Unknown]
  - Memory impairment [Unknown]
  - Stress [Unknown]
  - Thyroid mass [Unknown]
